FAERS Safety Report 7552254-0 (Version None)
Quarter: 2011Q2

REPORT INFORMATION
  Report Type: 
  Country: None (occurrence: None)
  Receive Date: 20110616
  Receipt Date: 20030617
  Transmission Date: 20111010
  Serious: Yes (Hospitalization)
  Sender: FDA-Public Use
  Company Number: PHHO2003CH07652

PATIENT
  Age: 74 Year
  Sex: Female

DRUGS (2)
  1. DIOVAN HCT [Suspect]
     Indication: HYPERTENSION
     Dosage: 160+25MG HCT
     Route: 048
     Dates: start: 20030217
  2. ASPIRIN [Concomitant]
     Dosage: 100 MG, UNK

REACTIONS (1)
  - CIRCULATORY COLLAPSE [None]
